FAERS Safety Report 6725565-6 (Version None)
Quarter: 2010Q2

REPORT INFORMATION
  Report Type: 
  Country: None (occurrence: None)
  Receive Date: 20100514
  Receipt Date: 20100503
  Transmission Date: 20101027
  Serious: Yes (Other)
  Sender: FDA-Public Use
  Company Number: ZA-PFIZER INC-2010055290

PATIENT
  Sex: Female

DRUGS (1)
  1. DOSTINEX [Suspect]
     Indication: LACTATION INHIBITION THERAPY
     Dosage: 0.5 MG, 2X/DAY
     Route: 048

REACTIONS (2)
  - MASTITIS [None]
  - MEDICATION ERROR [None]
